FAERS Safety Report 4685855-8 (Version None)
Quarter: 2005Q2

REPORT INFORMATION
  Report Type: 
  Country: None (occurrence: None)
  Receive Date: 20050606
  Receipt Date: 20050606
  Transmission Date: 20051028
  Serious: Yes (Other)
  Sender: FDA-Public Use
  Company Number: None

PATIENT

DRUGS (1)
  1. VIAGRA [Suspect]
     Dosage: 100 MG
     Dates: start: 20050806, end: 20050924

REACTIONS (1)
  - BLINDNESS UNILATERAL [None]
